FAERS Safety Report 9801311 (Version 1)
Quarter: 2014Q1

REPORT INFORMATION
  Report Type: Spontaneous
  Country: US (occurrence: US)
  Receive Date: 20140107
  Receipt Date: 20140107
  Transmission Date: 20141002
  Serious: No
  Sender: FDA-Public Use
  Company Number: US-GLAXOSMITHKLINE-A1045832A

PATIENT
  Age: 46 Year
  Sex: Female
  Weight: 58.9 kg

DRUGS (3)
  1. BENLYSTA [Suspect]
     Indication: PRODUCT USED FOR UNKNOWN INDICATION
     Dosage: 10MGK UNKNOWN
     Route: 065
     Dates: start: 20121001
  2. MYCOPHENOLATE MOFETIL [Suspect]
     Indication: PRODUCT USED FOR UNKNOWN INDICATION
     Dosage: 1G TWICE PER DAY
     Route: 065
     Dates: start: 20100920, end: 20130503
  3. HYDROXYCHLOROQUINE [Concomitant]

REACTIONS (1)
  - Leukopenia [Unknown]
